FAERS Safety Report 8182010-4 (Version None)
Quarter: 2012Q1

REPORT INFORMATION
  Report Type: 
  Country: None (occurrence: None)
  Receive Date: 20120302
  Receipt Date: 20120221
  Transmission Date: 20120608
  Serious: Yes (Other)
  Sender: FDA-Public Use
  Company Number: PHHY2012US017485

PATIENT
  Age: 42 Year
  Sex: Male

DRUGS (4)
  1. CUBICIN [Suspect]
     Indication: BACTERIAL INFECTION
  2. NAFCILLIN [Concomitant]
  3. AMPICILLIN [Suspect]
  4. GENTAMICIN [Concomitant]

REACTIONS (2)
  - SEPTIC SHOCK [None]
  - CARDIOGENIC SHOCK [None]
